FAERS Safety Report 20430444 (Version 1)
Quarter: 2022Q1

REPORT INFORMATION
  Report Type: Report from Study
  Country: FR (occurrence: FR)
  Receive Date: 20220204
  Receipt Date: 20220204
  Transmission Date: 20220423
  Serious: Yes (Other)
  Sender: FDA-Public Use
  Company Number: FR-SERVIER-S20008074

PATIENT

DRUGS (17)
  1. PEGASPARGASE [Suspect]
     Active Substance: PEGASPARGASE
     Indication: Acute lymphocytic leukaemia
     Dosage: 2800 IU, D15-D43
     Route: 042
     Dates: start: 20180814, end: 20180913
  2. MERCAPTOPURINE [Suspect]
     Active Substance: MERCAPTOPURINE
     Indication: Acute lymphocytic leukaemia
     Dosage: 69 MG, D1 TO D14, D29 TO D42
     Route: 048
     Dates: start: 20180731, end: 20180912
  3. CYCLOPHOSPHAMIDE [Suspect]
     Active Substance: CYCLOPHOSPHAMIDE
     Indication: Acute lymphocytic leukaemia
     Dosage: 1120 MG, D1 TO D29
     Route: 042
     Dates: start: 20180731, end: 20180830
  4. CYTARABINE [Suspect]
     Active Substance: CYTARABINE
     Indication: Acute lymphocytic leukaemia
     Dosage: 85 MG, D3 TO D6, D10 TO D13, D31
     Route: 042
     Dates: start: 20180802, end: 20180909
  5. CYTARABINE [Suspect]
     Active Substance: CYTARABINE
     Dosage: 30 MG, D3-D31
     Route: 037
     Dates: start: 20180802, end: 20180831
  6. VINCRISTINE SULFATE [Suspect]
     Active Substance: VINCRISTINE SULFATE
     Indication: Acute lymphocytic leukaemia
     Dosage: 1.7 MG, D15-D22, D43-D50
     Route: 042
     Dates: start: 20180814, end: 20180920
  7. METHOTREXATE [Suspect]
     Active Substance: METHOTREXATE
     Indication: Acute lymphocytic leukaemia
     Dosage: 15 MG  D3-D31
     Route: 037
     Dates: start: 20180802, end: 20180831
  8. HYDROCORTISONE SODIUM SUCCINATE [Suspect]
     Active Substance: HYDROCORTISONE SODIUM SUCCINATE
     Indication: Acute lymphocytic leukaemia
     Dosage: 15 MG, D3-D31
     Route: 037
     Dates: start: 20180802, end: 20180831
  9. TN UNSPECIFIED [Concomitant]
     Indication: Pain
     Dosage: 2 G, QD
     Route: 048
     Dates: start: 20180619
  10. TN UNSPECIFIED [Concomitant]
     Indication: Pyrexia
     Dosage: 2.4 G, QD
     Route: 042
     Dates: start: 20180619
  11. ONDANSETRON [Concomitant]
     Active Substance: ONDANSETRON
     Indication: Vomiting
     Dosage: 16 MG, QD
     Route: 048
     Dates: start: 20180626
  12. ONDANSETRON [Concomitant]
     Active Substance: ONDANSETRON
     Dosage: 16 MG, QD
     Route: 042
     Dates: start: 20180626
  13. Calcidose [Concomitant]
     Indication: Bone demineralisation
     Dosage: 500 MG, QD
     Route: 048
     Dates: start: 20180628
  14. CHOLECALCIFEROL [Concomitant]
     Active Substance: CHOLECALCIFEROL
     Indication: Bone demineralisation
     Dosage: 100 IU/ML, 3X A MONTH
     Route: 048
     Dates: start: 20180628
  15. OMEPRAZOLE [Concomitant]
     Active Substance: OMEPRAZOLE
     Indication: Gastritis prophylaxis
     Dosage: 20 MG, QD
     Route: 048
     Dates: start: 20180701
  16. POLARAMINE [Concomitant]
     Active Substance: DEXCHLORPHENIRAMINE MALEATE
     Indication: Allergy prophylaxis
     Dosage: 5 MG, QD
     Route: 042
     Dates: start: 20180707
  17. ATARAX [Concomitant]
     Active Substance: HYDROXYZINE HYDROCHLORIDE
     Indication: Mood altered
     Dosage: 25 MG, QD
     Route: 042
     Dates: start: 20181014

REACTIONS (1)
  - Gamma-glutamyltransferase increased [Recovered/Resolved]

NARRATIVE: CASE EVENT DATE: 20180926
